FAERS Safety Report 7355360-9 (Version None)
Quarter: 2011Q1

REPORT INFORMATION
  Report Type: 
  Country: None (occurrence: None)
  Receive Date: 20110316
  Receipt Date: 20110310
  Transmission Date: 20110831
  Serious: No
  Sender: FDA-Public Use
  Company Number: BR-ROCHE-761608

PATIENT
  Sex: Female
  Weight: 76.5 kg

DRUGS (9)
  1. TOCILIZUMAB [Suspect]
     Dosage: INTERRUPTED
     Route: 065
     Dates: start: 20100801
  2. PARACETAMOL [Concomitant]
  3. PREDNISONE [Concomitant]
  4. TOCILIZUMAB [Suspect]
     Route: 065
     Dates: start: 20100701, end: 20100701
  5. PROCIMAX [Concomitant]
  6. CRESTOR [Concomitant]
  7. TOCILIZUMAB [Suspect]
     Indication: RHEUMATOID ARTHRITIS
     Route: 065
     Dates: start: 20100601, end: 20100601
  8. METHOTREXATE [Concomitant]
     Dosage: HAD NOT BEEN TAKING IT SINCE 4 WEEKS
     Dates: end: 20110101
  9. OMEPRAZOLE [Concomitant]

REACTIONS (2)
  - PAIN [None]
  - MUSCULOSKELETAL STIFFNESS [None]
